FAERS Safety Report 10761100 (Version 1)
Quarter: 2015Q1

REPORT INFORMATION
  Report Type: Spontaneous
  Country: US (occurrence: None)
  Receive Date: 20150202
  Receipt Date: 20150202
  Transmission Date: 20150721
  Serious: Yes (Life-Threatening, Hospitalization)
  Sender: FDA-Public Use
  Company Number: 1713747-2013-99956

PATIENT
  Age: 58 Year
  Sex: Male

DRUGS (5)
  1. 0.9% SODIUM CHLORIDE INJECTION, USP IN MINI-BAG PLUS CONTAINER [Suspect]
     Active Substance: SODIUM CHLORIDE
     Indication: CHRONIC KIDNEY DISEASE
     Dosage: HEMODIALYSIS
     Dates: start: 20051213
  2. FRESENIUS COLLECTIVE CONCENTRATES-GRANUFLO/NATURALYTE [Concomitant]
  3. FRESENIUS COMBISET [Concomitant]
  4. FRESENIUS 2008K HEMODIALYSIS MACHINE [Concomitant]
     Active Substance: DEVICE
  5. OPTIFLUX 180NR DIALYZER [Concomitant]

REACTIONS (2)
  - Unresponsive to stimuli [None]
  - Blood pressure decreased [None]

NARRATIVE: CASE EVENT DATE: 20051213
